FAERS Safety Report 18464286 (Version 1)
Quarter: 2020Q4

REPORT INFORMATION
  Report Type: Spontaneous
  Country: AU (occurrence: AU)
  Receive Date: 20201104
  Receipt Date: 20201104
  Transmission Date: 20210114
  Serious: No
  Sender: FDA-Public Use
  Company Number: AU-JAZZ-2020-AU-013825

PATIENT

DRUGS (1)
  1. DEFIBROTIDE [Suspect]
     Active Substance: DEFIBROTIDE (BOVINE)
     Indication: PROPHYLAXIS
     Dosage: UNKNOWN DOSE AND DURATION

REACTIONS (1)
  - Off label use [Unknown]
